FAERS Safety Report 6460594-1 (Version None)
Quarter: 2009Q4

REPORT INFORMATION
  Report Type: 
  Country: None (occurrence: None)
  Receive Date: 20091130
  Receipt Date: 20091117
  Transmission Date: 20100525
  Serious: Yes (Other)
  Sender: FDA-Public Use
  Company Number: FR-ASTRAZENECA-2009SE27641

PATIENT
  Age: 59 Year
  Sex: Female

DRUGS (1)
  1. CRESTOR [Suspect]
     Indication: HYPERCHOLESTEROLAEMIA
     Route: 048
     Dates: start: 20090601, end: 20091001

REACTIONS (5)
  - BLOOD AMYLASE INCREASED [None]
  - FATIGUE [None]
  - HEPATITIS [None]
  - MUSCLE SPASMS [None]
  - MYALGIA [None]
